FAERS Safety Report 5382063-2 (Version None)
Quarter: 2007Q3

REPORT INFORMATION
  Report Type: 
  Country: None (occurrence: None)
  Receive Date: 20070709
  Receipt Date: 20070703
  Transmission Date: 20080115
  Serious: Yes (Hospitalization)
  Sender: FDA-Public Use
  Company Number: HQWYE906105JUL07

PATIENT
  Sex: Male
  Weight: 66.74 kg

DRUGS (3)
  1. TEMSIROLIMUS [Suspect]
     Indication: METASTATIC RENAL CELL CARCINOMA
     Route: 042
     Dates: start: 20070627
  2. KYTRIL [Concomitant]
     Indication: NAUSEA
  3. ACIPHEX [Concomitant]

REACTIONS (2)
  - DEHYDRATION [None]
  - DYSPNOEA [None]
